FAERS Safety Report 5674398-0 (Version None)
Quarter: 2008Q1

REPORT INFORMATION
  Report Type: 
  Country: None (occurrence: None)
  Receive Date: 20080320
  Receipt Date: 20080205
  Transmission Date: 20080703
  Serious: No
  Sender: FDA-Public Use
  Company Number: US-BAYER-200812770NA

PATIENT
  Age: 47 Year
  Sex: Female
  Weight: 48 kg

DRUGS (4)
  1. YAZ [Suspect]
     Indication: HORMONE LEVEL ABNORMAL
     Route: 048
     Dates: start: 20080101
  2. AMINO ACIDS [Concomitant]
     Indication: SUPPLEMENTATION THERAPY
  3. OTHER ^ CREMES ^ (NOS) [Concomitant]
  4. VITAMIN B INJECTIONS [Concomitant]

REACTIONS (6)
  - DRY SKIN [None]
  - FEELING COLD [None]
  - FEELING HOT [None]
  - FLUSHING [None]
  - PRURITUS [None]
  - RASH [None]
